FAERS Safety Report 8975939 (Version 6)
Quarter: 2014Q2

REPORT INFORMATION
  Report Type: Report from Study
  Country: JP (occurrence: JP)
  Receive Date: 20121219
  Receipt Date: 20140403
  Transmission Date: 20141212
  Serious: Yes (Life-Threatening)
  Sender: FDA-Public Use
  Company Number: PHHY2012JP112959

PATIENT
  Age: 25 Year
  Sex: Male

DRUGS (45)
  1. LEPONEX / CLOZARIL [Suspect]
     Indication: SCHIZOPHRENIA, PARANOID TYPE
     Dosage: 12.5 MG, DAILY
     Route: 048
     Dates: start: 20120523, end: 20120523
  2. LEPONEX / CLOZARIL [Suspect]
     Dosage: 25 MG, DAILY
     Route: 048
     Dates: start: 20120524, end: 20120526
  3. LEPONEX / CLOZARIL [Suspect]
     Dosage: 50 MG, DAILY
     Route: 048
     Dates: start: 20120527, end: 20120529
  4. LEPONEX / CLOZARIL [Suspect]
     Dosage: 75 MG, DAILY
     Route: 048
     Dates: start: 20120530, end: 20120531
  5. LEPONEX / CLOZARIL [Suspect]
     Dosage: 100 MG, DAILY
     Route: 048
     Dates: start: 20120601, end: 20120602
  6. LEPONEX / CLOZARIL [Suspect]
     Dosage: 125 MG, DAILY
     Route: 048
     Dates: start: 20120603, end: 20120605
  7. LEPONEX / CLOZARIL [Suspect]
     Dosage: 150 MG, DAILY
     Route: 048
     Dates: start: 20120606, end: 20120608
  8. LEPONEX / CLOZARIL [Suspect]
     Dosage: 175 MG, DAILY
     Route: 048
     Dates: start: 20120609, end: 20120611
  9. LEPONEX / CLOZARIL [Suspect]
     Dosage: 200 MG, DAILY
     Route: 048
     Dates: start: 20120612, end: 20120619
  10. LEPONEX / CLOZARIL [Suspect]
     Dosage: 250 MG, DAILY
     Route: 048
     Dates: start: 20120620, end: 20120703
  11. LEPONEX / CLOZARIL [Suspect]
     Dosage: 300 MG, DAILY
     Route: 048
     Dates: start: 20120704, end: 20120710
  12. LEPONEX / CLOZARIL [Suspect]
     Dosage: 350 MG, DAILY
     Route: 048
     Dates: start: 20120711, end: 20120717
  13. LEPONEX / CLOZARIL [Suspect]
     Dosage: 400 MG, DAILY
     Route: 048
     Dates: start: 20120718, end: 20120918
  14. LEPONEX / CLOZARIL [Suspect]
     Dosage: 425 MG, DAILY DOSE
     Route: 048
     Dates: start: 20120919, end: 20120921
  15. LEPONEX / CLOZARIL [Suspect]
     Dosage: 450 MG, DAILY DOSE
     Route: 048
     Dates: start: 20120922, end: 20120925
  16. LEPONEX / CLOZARIL [Suspect]
     Dosage: 475 MG, DAILY DOSE
     Route: 048
     Dates: start: 20120926, end: 20120928
  17. LEPONEX / CLOZARIL [Suspect]
     Dosage: 500 MG, DAILY DOSE
     Route: 048
     Dates: start: 20120929, end: 20121120
  18. LEPONEX / CLOZARIL [Suspect]
     Dosage: 400 MG, DAILY DOSE
     Route: 048
     Dates: start: 20121121, end: 20121127
  19. LEPONEX / CLOZARIL [Suspect]
     Dosage: 425 MG, UNK
     Route: 048
     Dates: start: 20121128, end: 20121204
  20. CODEINE PHOSPHATE [Suspect]
     Indication: COUGH
     Dosage: 60 MG, UNK
     Dates: start: 20121117, end: 20121122
  21. ZOTEPINE [Concomitant]
     Dosage: 50 MG, UNK
     Dates: end: 20120605
  22. ZOTEPINE [Concomitant]
     Dosage: 25 MG, UNK
  23. AMANTADINE HYDROCHLORIDE [Concomitant]
     Indication: SCHIZOPHRENIA
     Dosage: 100 MG, UNK
     Route: 048
     Dates: end: 20120626
  24. AMANTADINE HYDROCHLORIDE [Concomitant]
     Dosage: 50 MG, UNK
     Route: 048
  25. VEGETAMIN A [Concomitant]
     Indication: SCHIZOPHRENIA
     Dosage: 2 DF, UNK
     Route: 048
     Dates: end: 20120612
  26. VEGETAMIN A [Concomitant]
     Dosage: 1 DF, UNK
     Route: 048
  27. FLUNITRAZEPAM [Concomitant]
     Indication: SCHIZOPHRENIA
     Dosage: 4 MG, UNK
     Route: 048
     Dates: end: 20120724
  28. LAMOTRIGINE [Concomitant]
     Indication: SCHIZOPHRENIA
     Dosage: 150 MG, UNK
     Route: 048
  29. LAMOTRIGINE [Concomitant]
     Dosage: 100 MG, UNK
     Route: 048
  30. LAMOTRIGINE [Concomitant]
     Dosage: 50 MG, UNK
     Route: 048
     Dates: end: 20120717
  31. PANTETHINE [Concomitant]
     Indication: CONSTIPATION
     Dosage: 600 MG, UNK
     Route: 048
     Dates: start: 20120723
  32. PANTETHINE [Concomitant]
     Dosage: 480 MG, UNK
     Route: 048
  33. MAGNESIUM OXIDE [Concomitant]
     Indication: CONSTIPATION
     Dosage: 2499 MG, UNK
     Route: 048
     Dates: start: 20120723
  34. MAGNESIUM OXIDE [Concomitant]
     Dosage: 1999.2 MG, UNK
  35. ESZOPICLONE [Concomitant]
     Indication: SCHIZOPHRENIA
     Dosage: 1 MG, UNK
     Route: 048
     Dates: start: 20120730
  36. SODIUM VALPROATE [Concomitant]
     Indication: SCHIZOPHRENIA
     Dosage: 200 MG, UNK
     Route: 048
     Dates: start: 20120731
  37. SODIUM VALPROATE [Concomitant]
     Dosage: 400 MG, UNK
     Route: 048
  38. SODIUM VALPROATE [Concomitant]
     Dosage: 600 MG, UNK
     Route: 048
  39. SODIUM VALPROATE [Concomitant]
     Dosage: 800 MG, UNK
     Route: 048
  40. CELECOXIB [Concomitant]
     Indication: CONSTIPATION
     Dosage: 100 MG, UNK
     Dates: start: 20120801, end: 20120821
  41. REBAMIPIDE [Concomitant]
     Indication: PROPHYLAXIS AGAINST GASTROINTESTINAL ULCER
     Dosage: 300 MG, UNK
     Route: 048
     Dates: start: 20121116, end: 20121122
  42. FAMOTIDINE [Concomitant]
     Indication: PROPHYLAXIS AGAINST GASTROINTESTINAL ULCER
     Dosage: 40 MG, UNK
     Route: 048
     Dates: start: 20121116, end: 20121122
  43. FEXOFENADINE HCL [Concomitant]
     Indication: PROPHYLAXIS AGAINST GASTROINTESTINAL ULCER
     Dosage: 120 MG, UNK
     Route: 048
     Dates: start: 20121118
  44. TULOBUTEROL [Concomitant]
     Dosage: 2 MG, UNK
     Dates: start: 20121114, end: 20121128
  45. RONFLEMAN [Concomitant]
     Indication: SCHIZOPHRENIA, PARANOID TYPE
     Dosage: 0.25 MG, UNK
     Route: 048
     Dates: start: 20121225

REACTIONS (9)
  - Asthma [Recovering/Resolving]
  - Cough [Unknown]
  - Nasopharyngitis [Recovered/Resolved]
  - Intestinal obstruction [Recovering/Resolving]
  - General physical health deterioration [Not Recovered/Not Resolved]
  - Abdominal distension [Not Recovered/Not Resolved]
  - Salivary hypersecretion [Not Recovered/Not Resolved]
  - White blood cell count increased [Recovered/Resolved]
  - Glucose tolerance impaired [Unknown]
